FAERS Safety Report 18307565 (Version 1)
Quarter: 2020Q3

REPORT INFORMATION
  Report Type: Spontaneous
  Country: GR (occurrence: GR)
  Receive Date: 20200924
  Receipt Date: 20200924
  Transmission Date: 20201103
  Serious: Yes (Other)
  Sender: FDA-Public Use
  Company Number: GR-PFIZER INC-2020366304

PATIENT
  Age: 78 Year
  Sex: Female

DRUGS (7)
  1. SALOSPIR [Concomitant]
     Active Substance: ASPIRIN
     Dosage: UNK
  2. PREZOLON [Concomitant]
     Active Substance: PREDNISOLONE
     Dosage: UNK
  3. METHOTREXATE SODIUM. [Suspect]
     Active Substance: METHOTREXATE SODIUM
     Indication: RHEUMATOID ARTHRITIS
  4. METHOTREXATE SODIUM. [Suspect]
     Active Substance: METHOTREXATE SODIUM
     Indication: ARTHROPATHY
     Dosage: 2X 2.5 MG TABLETS EVERY SATURDAY AND SUNDAY
     Dates: start: 201912
  5. METHOTREXATE SODIUM. [Suspect]
     Active Substance: METHOTREXATE SODIUM
     Indication: SCLERODERMA
  6. KLIMURTAN [Concomitant]
     Dosage: UNK
  7. METHOTREXATE SODIUM. [Suspect]
     Active Substance: METHOTREXATE SODIUM
     Indication: RAYNAUD^S PHENOMENON

REACTIONS (5)
  - Haematocrit decreased [Unknown]
  - Immunoglobulins increased [Unknown]
  - Blood creatinine decreased [Unknown]
  - Nodule [Unknown]
  - Pulmonary hypertension [Unknown]
